FAERS Safety Report 4845951-9 (Version None)
Quarter: 2005Q4

REPORT INFORMATION
  Report Type: 
  Country: None (occurrence: None)
  Receive Date: 20051130
  Receipt Date: 20051117
  Transmission Date: 20060501
  Serious: Yes (Other)
  Sender: FDA-Public Use
  Company Number: EM2005-0639

PATIENT
  Age: 51 Year
  Sex: Female

DRUGS (2)
  1. PROLEUKIN [Suspect]
     Indication: MALIGNANT MELANOMA
     Dosage: 18 MIU/M2, QD, CONT IV INFUS
     Route: 042
  2. NONCARDIOTOXIC CHEMOTHERAPY [Concomitant]

REACTIONS (1)
  - MYOCARDIAL ISCHAEMIA [None]
